FAERS Safety Report 19257420 (Version 1)
Quarter: 2021Q2

REPORT INFORMATION
  Report Type: Report from Study
  Country: CA (occurrence: CA)
  Receive Date: 20210513
  Receipt Date: 20210513
  Transmission Date: 20210717
  Serious: Yes (Other)
  Sender: FDA-Public Use
  Company Number: CA-JNJFOC-20210518747

PATIENT
  Age: 16 Year
  Sex: Female
  Weight: 51.6 kg

DRUGS (2)
  1. CEPHALEXINE [Concomitant]
     Active Substance: CEPHALEXIN
     Indication: PROPHYLAXIS
     Route: 065
  2. REMICADE [Suspect]
     Active Substance: INFLIXIMAB
     Indication: COLITIS ULCERATIVE
     Route: 042

REACTIONS (2)
  - Cyst [Not Recovered/Not Resolved]
  - Purulent discharge [Unknown]

NARRATIVE: CASE EVENT DATE: 202105
